FAERS Safety Report 17720897 (Version 2)
Quarter: 2020Q2

REPORT INFORMATION
  Report Type: Spontaneous
  Country: US (occurrence: US)
  Receive Date: 20200428
  Receipt Date: 20200513
  Transmission Date: 20200714
  Serious: Yes (Hospitalization)
  Sender: FDA-Public Use
  Company Number: US-BRISTOL-MYERS SQUIBB COMPANY-BMS-2020-032842

PATIENT
  Age: 87 Year
  Sex: Male

DRUGS (1)
  1. SPRYCEL [Suspect]
     Active Substance: DASATINIB
     Indication: MYELOPROLIFERATIVE NEOPLASM
     Dosage: 100 MILLIGRAM, QD
     Route: 048

REACTIONS (5)
  - Headache [Unknown]
  - Pain [Unknown]
  - Dehydration [Unknown]
  - Dyspnoea [Unknown]
  - Decreased appetite [Unknown]

NARRATIVE: CASE EVENT DATE: 20200420
